FAERS Safety Report 4979007-1 (Version None)
Quarter: 2006Q2

REPORT INFORMATION
  Report Type: 
  Country: None (occurrence: None)
  Receive Date: 20060421
  Receipt Date: 20060117
  Transmission Date: 20061013
  Serious: Yes (Other)
  Sender: FDA-Public Use
  Company Number: FRWYE313419JAN06

PATIENT
  Age: 45 Year
  Sex: Female

DRUGS (4)
  1. ENBREL [Suspect]
     Indication: ANKYLOSING SPONDYLITIS
     Route: 058
     Dates: start: 20051014
  2. ENBREL [Suspect]
     Route: 058
     Dates: start: 20060201
  3. LUTERAN [Suspect]
     Route: 065
     Dates: end: 20060104
  4. ESOMEPRAZOLE [Concomitant]
     Route: 065

REACTIONS (3)
  - CYTOLYTIC HEPATITIS [None]
  - GASTRITIS [None]
  - TYPE III IMMUNE COMPLEX MEDIATED REACTION [None]
